FAERS Safety Report 11872602 (Version 1)
Quarter: 2015Q4

REPORT INFORMATION
  Report Type: Spontaneous
  Country: US (occurrence: US)
  Receive Date: 20151228
  Receipt Date: 20151228
  Transmission Date: 20160305
  Serious: Yes (Hospitalization)
  Sender: FDA-Public Use
  Company Number: US-CELGENE-USA-2015123333

PATIENT
  Age: 29 Year
  Sex: Male

DRUGS (1)
  1. OTEZLA [Suspect]
     Active Substance: APREMILAST
     Indication: PRODUCT USED FOR UNKNOWN INDICATION
     Dosage: 30 MILLIGRAM
     Route: 048
     Dates: start: 201506

REACTIONS (4)
  - Immune system disorder [Unknown]
  - Renal impairment [Unknown]
  - Pneumonia [Unknown]
  - Anaemia [Unknown]

NARRATIVE: CASE EVENT DATE: 20151214
